FAERS Safety Report 5805172-X (Version None)
Quarter: 2008Q3

REPORT INFORMATION
  Report Type: 
  Country: None (occurrence: None)
  Receive Date: 20080709
  Receipt Date: 20080625
  Transmission Date: 20090109
  Serious: Yes (Death)
  Sender: FDA-Public Use
  Company Number: FR-GENENTECH-257902

PATIENT
  Age: 80 Year
  Sex: Female

DRUGS (7)
  1. MABTHERA [Suspect]
     Indication: NON-HODGKIN'S LYMPHOMA
     Route: 042
  2. PREMEDICATION DRUGS [Concomitant]
     Indication: PREMEDICATION
  3. ENDOXAN [Concomitant]
     Indication: DRUG USE FOR UNKNOWN INDICATION
  4. ONCOVIN [Concomitant]
     Indication: DRUG USE FOR UNKNOWN INDICATION
  5. CORTICOTHERAPY [Concomitant]
     Indication: DRUG USE FOR UNKNOWN INDICATION
  6. ADRIBLASTINA [Concomitant]
     Indication: DRUG USE FOR UNKNOWN INDICATION
  7. ZOFRAN [Concomitant]
     Indication: DRUG USE FOR UNKNOWN INDICATION

REACTIONS (1)
  - LARYNGEAL OEDEMA [None]
